FAERS Safety Report 7207041-X (Version None)
Quarter: 2011Q1

REPORT INFORMATION
  Report Type: 
  Country: None (occurrence: None)
  Receive Date: 20110103
  Receipt Date: 20101222
  Transmission Date: 20110831
  Serious: Yes (Other)
  Sender: FDA-Public Use
  Company Number: B0688894A

PATIENT
  Age: 32 Year
  Sex: Female

DRUGS (3)
  1. LAMICTAL [Suspect]
     Dosage: 125MG PER DAY
     Route: 048
     Dates: start: 20100204, end: 20101130
  2. TEGRETOL [Concomitant]
     Route: 048
  3. DEPAKENE [Concomitant]
     Route: 048

REACTIONS (4)
  - HYPERTHERMIA [None]
  - DIARRHOEA [None]
  - COLITIS ULCERATIVE [None]
  - MELAENA [None]
